FAERS Safety Report 5908944-6 (Version None)
Quarter: 2008Q4

REPORT INFORMATION
  Report Type: 
  Country: None (occurrence: None)
  Receive Date: 20081001
  Receipt Date: 20080915
  Transmission Date: 20090506
  Serious: Yes (Other)
  Sender: FDA-Public Use
  Company Number: DSA_62309_2008

PATIENT
  Age: 8 Year
  Sex: Female

DRUGS (1)
  1. DIASTAT [Suspect]
     Indication: CONVULSION
     Dosage: (10 MG RECTAL)
     Route: 054

REACTIONS (2)
  - CONVULSION [None]
  - PRODUCT QUALITY ISSUE [None]
